FAERS Safety Report 6390161-X (Version None)
Quarter: 2009Q4

REPORT INFORMATION
  Report Type: 
  Country: None (occurrence: None)
  Receive Date: 20091005
  Receipt Date: 20091005
  Transmission Date: 20100525
  Serious: Yes (Hospitalization)
  Sender: FDA-Public Use
  Company Number: None

PATIENT
  Age: 61 Year
  Sex: Male

DRUGS (1)
  1. SULFAMETHOXAZOLE AND TRIMETHOPRIM [Suspect]
     Indication: DECUBITUS ULCER
     Dosage: 1 TAB BID PO
     Route: 048
     Dates: start: 20090722, end: 20090728

REACTIONS (6)
  - DIARRHOEA [None]
  - HEPATIC ENZYME INCREASED [None]
  - HYPONATRAEMIA [None]
  - PANCYTOPENIA [None]
  - RENAL FAILURE ACUTE [None]
  - VIRAL INFECTION [None]
